FAERS Safety Report 10539695 (Version 1)
Quarter: 2014Q4

REPORT INFORMATION
  Report Type: Report from Study
  Country: US (occurrence: US)
  Receive Date: 20141024
  Receipt Date: 20141024
  Transmission Date: 20150529
  Serious: Yes (Other)
  Sender: FDA-Public Use
  Company Number: US-AMGEN-USACT2014080438

PATIENT
  Age: 76 Year
  Sex: Female
  Weight: 49.89 kg

DRUGS (8)
  1. DILTIAZEM HCL [Concomitant]
     Active Substance: DILTIAZEM HYDROCHLORIDE
     Dosage: UNK
  2. DENOSUMAB [Suspect]
     Active Substance: DENOSUMAB
     Indication: BREAST CANCER
     Dosage: 120 MG, UNK
     Route: 058
  3. MEGESTROL ACETATE. [Concomitant]
     Active Substance: MEGESTROL ACETATE
     Dosage: UNK
  4. LETROZOLE. [Concomitant]
     Active Substance: LETROZOLE
     Dosage: UNK
  5. ATENOLOL. [Concomitant]
     Active Substance: ATENOLOL
  6. RAMIPRIL. [Concomitant]
     Active Substance: RAMIPRIL
     Dosage: UNK
  7. CALTRATE D                         /00944201/ [Concomitant]
     Dosage: UNK
  8. AROMASIN [Concomitant]
     Active Substance: EXEMESTANE
     Dosage: UNK

REACTIONS (1)
  - Oral cavity fistula [Unknown]

NARRATIVE: CASE EVENT DATE: 20140305
